FAERS Safety Report 16368591 (Version 2)
Quarter: 2019Q2

REPORT INFORMATION
  Report Type: Spontaneous
  Country: US (occurrence: US)
  Receive Date: 20190529
  Receipt Date: 20190603
  Transmission Date: 20190711
  Serious: Yes (Other)
  Sender: FDA-Public Use
  Company Number: US-PFIZER INC-2019224548

PATIENT
  Age: 28 Year
  Sex: Female

DRUGS (1)
  1. EFFEXOR [Suspect]
     Active Substance: VENLAFAXINE HYDROCHLORIDE
     Indication: ANXIETY
     Dosage: UNK

REACTIONS (11)
  - Cognitive disorder [Unknown]
  - Chills [Unknown]
  - Anxiety [Not Recovered/Not Resolved]
  - Feeling abnormal [Unknown]
  - Malaise [Unknown]
  - Brain injury [Unknown]
  - Amnesia [Unknown]
  - Crying [Unknown]
  - Fatigue [Unknown]
  - Depression [Unknown]
  - Cerebral disorder [Recovering/Resolving]
